FAERS Safety Report 5227548-4 (Version None)
Quarter: 2007Q1

REPORT INFORMATION
  Report Type: 
  Country: None (occurrence: None)
  Receive Date: 20070202
  Receipt Date: 20070122
  Transmission Date: 20070707
  Serious: Yes (Death)
  Sender: FDA-Public Use
  Company Number: US-ELI_LILLY_AND_COMPANY-US200701000167

PATIENT
  Age: 55 Year
  Sex: Female
  Weight: 70.294 kg

DRUGS (2)
  1. ZYPREXA [Suspect]
     Indication: SCHIZOAFFECTIVE DISORDER
     Dosage: 30 MG, UNK
     Route: 048
  2. DEPAKOTE [Concomitant]
     Dosage: 1500 MG, DAILY (1/D)

REACTIONS (3)
  - CIRCULATORY COLLAPSE [None]
  - DRUG TOXICITY [None]
  - PRESCRIBED OVERDOSE [None]
